FAERS Safety Report 13576003 (Version 1)
Quarter: 2017Q2

REPORT INFORMATION
  Report Type: Spontaneous
  Country: US (occurrence: US)
  Receive Date: 20170524
  Receipt Date: 20170524
  Transmission Date: 20170830
  Serious: No
  Sender: FDA-Public Use
  Company Number: US-PFIZER INC-2017222340

PATIENT
  Age: 42 Year
  Sex: Female
  Weight: 74.84 kg

DRUGS (2)
  1. TRAZODONE [Concomitant]
     Active Substance: TRAZODONE HYDROCHLORIDE
     Indication: SLEEP DISORDER
     Dosage: 100 MG, 1X/DAY (2 TABLETS AT BEDTIME)
  2. CHANTIX [Suspect]
     Active Substance: VARENICLINE TARTRATE
     Indication: SMOKING CESSATION THERAPY
     Dates: end: 20170514

REACTIONS (6)
  - Flushing [Unknown]
  - Acne [Unknown]
  - Wound drainage [Unknown]
  - Hypoaesthesia [Unknown]
  - Rash [Recovering/Resolving]
  - Blister [Unknown]
